FAERS Safety Report 7972571-X (Version None)
Quarter: 2011Q4

REPORT INFORMATION
  Report Type: 
  Country: None (occurrence: None)
  Receive Date: 20111209
  Receipt Date: 20111128
  Transmission Date: 20120403
  Serious: Yes (Other)
  Sender: FDA-Public Use
  Company Number: JP-2011-12381

PATIENT
  Age: 88 Year
  Sex: Female
  Weight: 56 kg

DRUGS (14)
  1. KETAS (IBUDILAST) [Concomitant]
  2. JUSO (SODIUM BICARBONATE) [Concomitant]
  3. LASIX [Concomitant]
  4. ALLOPURINOL [Concomitant]
  5. PREDNISOLONE [Concomitant]
  6. CLARITIN [Concomitant]
  7. MAGLAX (MAGNESIUM OXIDE) [Concomitant]
  8. ONEALFA (ALFACALCIDOL) [Concomitant]
  9. KETOPROFEN [Concomitant]
  10. SAMSCA [Suspect]
     Indication: FLUID RETENTION
     Dosage: 3.75 MG MILLIGRAM(S), QAM, ORAL 7.5 MG MILLIGRAM(S), QAM, ORAL ; 15 MG MILLIGRAM(S), QAM, ORAL
     Route: 048
     Dates: start: 20111012, end: 20111013
  11. SAMSCA [Suspect]
     Indication: FLUID RETENTION
     Dosage: 3.75 MG MILLIGRAM(S), QAM, ORAL 7.5 MG MILLIGRAM(S), QAM, ORAL ; 15 MG MILLIGRAM(S), QAM, ORAL
     Route: 048
     Dates: start: 20111014, end: 20111018
  12. SAMSCA [Suspect]
     Indication: FLUID RETENTION
     Dosage: 3.75 MG MILLIGRAM(S), QAM, ORAL 7.5 MG MILLIGRAM(S), QAM, ORAL ; 15 MG MILLIGRAM(S), QAM, ORAL
     Route: 048
     Dates: start: 20111019, end: 20111026
  13. MYONAL (EPERISONE HYDROCHLORIDE) [Concomitant]
  14. ARGAMATE (CALCIUM POLYSTYRENE SULFONATE) [Concomitant]

REACTIONS (3)
  - ASPARTATE AMINOTRANSFERASE INCREASED [None]
  - BLOOD UREA INCREASED [None]
  - THIRST [None]
